FAERS Safety Report 8045311-6 (Version None)
Quarter: 2012Q1

REPORT INFORMATION
  Report Type: 
  Country: None (occurrence: None)
  Receive Date: 20120110
  Receipt Date: 20111228
  Transmission Date: 20120608
  Serious: Yes (Hospitalization)
  Sender: FDA-Public Use
  Company Number: 2012ST000013

PATIENT
  Age: 66 Year
  Sex: Male

DRUGS (1)
  1. MATULANE [Suspect]
     Indication: HODGKIN'S DISEASE
     Dosage: 150 MG; QD; PO
     Route: 048
     Dates: start: 20110909

REACTIONS (1)
  - SEPTIC SHOCK [None]
